FAERS Safety Report 6855220-3 (Version None)
Quarter: 2010Q3

REPORT INFORMATION
  Report Type: 
  Country: None (occurrence: None)
  Receive Date: 20100718
  Receipt Date: 20100715
  Transmission Date: 20110219
  Serious: Yes (Hospitalization, Other)
  Sender: FDA-Public Use
  Company Number: DE-BRISTOL-MYERS SQUIBB COMPANY-14534937

PATIENT
  Age: 75 Year
  Sex: Female
  Weight: 88 kg

DRUGS (12)
  1. KARVEA FILM-COATED TABS [Suspect]
     Indication: HYPERTENSION
     Route: 048
     Dates: start: 20071201, end: 20080602
  2. RAMIPRIL + HCTZ [Suspect]
     Indication: HYPERTENSION
     Dosage: 5 MG RAMIPRIL AND 25 MG HCTZ;INTERRUPTED FROM 02-JUN-2008 UNTIL 09-JUN-2008
     Route: 048
     Dates: start: 20070101
  3. AMLODIPINE [Concomitant]
     Indication: HYPERTENSION
     Dosage: TABLETS
     Route: 048
     Dates: start: 20080101
  4. FURORESE [Concomitant]
     Indication: HYPERTENSION
     Dosage: TABLETS
     Route: 048
     Dates: start: 20070101
  5. GABAPENTIN [Concomitant]
     Indication: DIABETIC NEUROPATHY
     Dosage: HARD CAPSULES
     Route: 048
     Dates: start: 20070101
  6. IBUPROFEN [Concomitant]
     Indication: DIABETIC NEUROPATHY
     Dosage: FILM-COATED TABLETS
     Route: 048
     Dates: start: 20070101
  7. ACETYLSALICYLIC ACID [Concomitant]
     Indication: PLATELET AGGREGATION INHIBITION
     Dosage: TABLETS
     Route: 048
     Dates: start: 20071201
  8. METFORMIN HCL [Concomitant]
     Indication: TYPE 2 DIABETES MELLITUS
     Dosage: FILM-COATED TABLETS
     Route: 048
     Dates: start: 20030101
  9. MIRTAZAPINE [Concomitant]
     Indication: DEPRESSION
     Dosage: FILM-COATED TABLETS
     Dates: start: 20080101
  10. TILIDINE [Concomitant]
     Indication: DIABETIC NEUROPATHY
     Dosage: PROLONGED-RELEASE TABLETS
     Route: 048
  11. VESICARE [Concomitant]
     Indication: URINARY INCONTINENCE
     Dosage: FILM-COATED TABLETS
     Route: 048
  12. OMEPRAZOLE [Concomitant]
     Indication: GASTRITIS
     Dosage: HARD CAPSULES
     Route: 048
     Dates: start: 20071201

REACTIONS (4)
  - DIZZINESS [None]
  - HYPERKALAEMIA [None]
  - INFECTION [None]
  - LOSS OF CONSCIOUSNESS [None]
